FAERS Safety Report 9357478 (Version 2)
Quarter: 2013Q3

REPORT INFORMATION
  Report Type: Spontaneous
  Country: FI (occurrence: FI)
  Receive Date: 20130620
  Receipt Date: 20130711
  Transmission Date: 20140515
  Serious: Yes (Hospitalization, Disabling)
  Sender: FDA-Public Use
  Company Number: PHHY2013FI061692

PATIENT
  Age: 70 Year
  Sex: Female

DRUGS (7)
  1. VOLTAREN RETARD [Suspect]
     Indication: MUSCULOSKELETAL PAIN
     Dosage: 100 MG
     Route: 048
     Dates: start: 20130513, end: 20130517
  2. JANUVIA [Concomitant]
     Indication: DIABETES MELLITUS
     Dosage: 100 MG
     Route: 048
  3. THYROXIN [Concomitant]
     Indication: HYPOTHYROIDISM
     Dosage: 125 UG,
     Route: 048
  4. PRIMASPAN [Concomitant]
     Indication: TRANSIENT ISCHAEMIC ATTACK
     Dosage: 100 MG
     Route: 048
  5. DETRUSITOL [Concomitant]
     Dosage: 1 MG,
     Route: 048
  6. NORFLEX [Concomitant]
     Indication: MUSCULOSKELETAL PAIN
     Dosage: 100 MG
     Route: 048
     Dates: start: 20130513, end: 20130517
  7. AIROMIR [Concomitant]
     Dosage: PRN

REACTIONS (3)
  - Dysphonia [Recovering/Resolving]
  - Throat irritation [Recovered/Resolved]
  - Drug hypersensitivity [Recovering/Resolving]
